FAERS Safety Report 6654500-4 (Version None)
Quarter: 2010Q1

REPORT INFORMATION
  Report Type: 
  Country: None (occurrence: None)
  Receive Date: 20100326
  Receipt Date: 20100315
  Transmission Date: 20100710
  Serious: Yes (Other)
  Sender: FDA-Public Use
  Company Number: US-PFIZER INC-2010034164

PATIENT
  Sex: Male
  Weight: 65.8 kg

DRUGS (1)
  1. SUTENT [Suspect]
     Indication: NEOPLASM MALIGNANT
     Dosage: 25 MG, UNK
     Route: 048
     Dates: start: 20090401

REACTIONS (2)
  - INFLUENZA [None]
  - VERTIGO [None]
